FAERS Safety Report 7728781-X (Version None)
Quarter: 2011Q3

REPORT INFORMATION
  Report Type: 
  Country: None (occurrence: None)
  Receive Date: 20110906
  Receipt Date: 20110823
  Transmission Date: 20111222
  Serious: Yes (Other)
  Sender: FDA-Public Use
  Company Number: DE-ELI_LILLY_AND_COMPANY-DE201108006753

PATIENT
  Sex: Male

DRUGS (8)
  1. RAMIPRIL [Concomitant]
     Dosage: 25 MG, UNK
  2. SIMVASTATIN [Concomitant]
  3. TORSEMIDE [Concomitant]
  4. FORTEO [Suspect]
     Indication: OSTEOPOROSIS
     Dosage: UNK, QD
     Route: 058
     Dates: start: 20101208
  5. ASPIRIN [Concomitant]
  6. NEBIVOLOL HCL [Concomitant]
  7. MARCUMAR [Concomitant]
  8. NIASPAN [Concomitant]

REACTIONS (1)
  - THROMBOSIS [None]
